FAERS Safety Report 6408576-X (Version None)
Quarter: 2009Q4

REPORT INFORMATION
  Report Type: 
  Country: None (occurrence: None)
  Receive Date: 20091021
  Receipt Date: 20091012
  Transmission Date: 20100525
  Serious: Yes (Hospitalization)
  Sender: FDA-Public Use
  Company Number: CH-BAXTER-2009BH013425

PATIENT
  Age: 20 Year
  Sex: Male

DRUGS (2)
  1. HEMOFIL M [Suspect]
     Indication: HAEMORRHAGE
     Route: 065
     Dates: start: 20090827, end: 20090827
  2. ACETAMINOPHEN [Concomitant]

REACTIONS (3)
  - BACTERIAL SEPSIS [None]
  - CONJUNCTIVAL HYPERAEMIA [None]
  - RASH MACULAR [None]
